FAERS Safety Report 5723570-X (Version None)
Quarter: 2008Q2

REPORT INFORMATION
  Report Type: 
  Country: None (occurrence: None)
  Receive Date: 20080430
  Receipt Date: 20080422
  Transmission Date: 20081010
  Serious: Yes (Hospitalization)
  Sender: FDA-Public Use
  Company Number: B0517848A

PATIENT
  Age: 81 Year
  Sex: Male

DRUGS (11)
  1. AUGMENTIN '125' [Suspect]
     Indication: INFECTION
     Dosage: 1G THREE TIMES PER DAY
     Route: 048
     Dates: start: 20070602, end: 20070611
  2. DOLIPRANE [Suspect]
     Indication: BONE PAIN
     Dosage: 500MG TWICE PER DAY
     Route: 048
     Dates: start: 20070603
  3. PREVISCAN [Suspect]
     Indication: DRUG USE FOR UNKNOWN INDICATION
     Route: 048
  4. CRESTOR [Suspect]
     Dosage: 5MG PER DAY
     Route: 048
  5. DIANTALVIC [Suspect]
     Indication: BONE PAIN
     Route: 048
     Dates: start: 20070603
  6. TRIATEC [Concomitant]
     Dosage: 5MG PER DAY
     Route: 048
  7. AMLOR [Concomitant]
     Indication: DRUG USE FOR UNKNOWN INDICATION
     Dosage: 10MG PER DAY
     Route: 065
  8. INSULATARD [Concomitant]
     Dosage: 16IU TWICE PER DAY
     Route: 065
  9. LEUPROLIDE ACETATE [Concomitant]
     Indication: DRUG USE FOR UNKNOWN INDICATION
     Dosage: 1INJ EVERY 3 MONTHS
     Route: 065
  10. DIFFU K [Concomitant]
     Indication: DRUG USE FOR UNKNOWN INDICATION
     Route: 065
  11. LASILIX [Concomitant]
     Indication: DRUG USE FOR UNKNOWN INDICATION
     Dosage: 40MG PER DAY
     Route: 065

REACTIONS (1)
  - INTERNATIONAL NORMALISED RATIO INCREASED [None]
